FAERS Safety Report 4368117-8 (Version None)
Quarter: 2004Q2

REPORT INFORMATION
  Report Type: 
  Country: None (occurrence: None)
  Receive Date: 20040602
  Receipt Date: 20021125
  Transmission Date: 20050107
  Serious: Yes (Hospitalization)
  Sender: FDA-Public Use
  Company Number: US-BRISTOL-MYERS SQUIBB COMPANY-12124103

PATIENT
  Age: 24 Year
  Sex: Male

DRUGS (5)
  1. GATIFLO TABS [Suspect]
     Indication: POSTOPERATIVE INFECTION
     Route: 048
     Dates: start: 20021101, end: 20021107
  2. LOXONIN [Concomitant]
     Route: 048
     Dates: start: 20021020, end: 20021107
  3. APLACE [Concomitant]
     Route: 048
     Dates: start: 20021020, end: 20021107
  4. CEFOTIAM HYDROCHLORIDE [Concomitant]
     Dosage: IN 100 ML PHYSIOLOGIC SALINE
     Route: 051
     Dates: start: 20021021, end: 20021025
  5. MEGALOCIN [Concomitant]
     Dates: start: 20021026

REACTIONS (2)
  - OCULOMUCOCUTANEOUS SYNDROME [None]
  - STEVENS-JOHNSON SYNDROME [None]
